FAERS Safety Report 22020932 (Version 2)
Quarter: 2023Q2

REPORT INFORMATION
  Report Type: Spontaneous
  Country: CA (occurrence: CA)
  Receive Date: 20230222
  Receipt Date: 20230518
  Transmission Date: 20230721
  Serious: Yes (Other)
  Sender: FDA-Public Use
  Company Number: CA-AstraZeneca-2023A038045

PATIENT
  Sex: Male

DRUGS (1)
  1. TRASTUZUMAB DERUXTECAN [Suspect]
     Active Substance: TRASTUZUMAB DERUXTECAN
     Indication: Breast cancer male
     Dosage: 335 MG, ONCE EVERY 3 WK
     Route: 042

REACTIONS (3)
  - Deep vein thrombosis [Unknown]
  - Off label use [Unknown]
  - Intentional product misuse [Unknown]
